FAERS Safety Report 6052624-6 (Version None)
Quarter: 2009Q1

REPORT INFORMATION
  Report Type: 
  Country: None (occurrence: None)
  Receive Date: 20090127
  Receipt Date: 20090122
  Transmission Date: 20090719
  Serious: Yes (Hospitalization)
  Sender: FDA-Public Use
  Company Number: DE-WYE-G02991709

PATIENT
  Sex: Female
  Weight: 110 kg

DRUGS (3)
  1. TREVILOR RETARD [Suspect]
     Dosage: 2 CAPSULES OF TREVILOR RETARD 75 (OVERDOSE AMOUNT 300 MG)
     Route: 048
     Dates: start: 20090122, end: 20090122
  2. TREVILOR RETARD [Suspect]
     Dosage: 64 CAPSULES OF TREVILOR RETARD 150 (OVERDOSE AMOUNT 4800 MG)
     Route: 048
     Dates: start: 20090122, end: 20090122
  3. SEROQUEL [Suspect]
     Dosage: 8 TABLETS (OVERDOSE AMOUNT 3200 MG)
     Route: 048
     Dates: start: 20090122, end: 20090122

REACTIONS (3)
  - GASTROINTESTINAL SOUNDS ABNORMAL [None]
  - INTENTIONAL OVERDOSE [None]
  - SUICIDE ATTEMPT [None]
